FAERS Safety Report 25484081 (Version 2)
Quarter: 2025Q3

REPORT INFORMATION
  Report Type: Report from Study
  Country: CA (occurrence: CA)
  Receive Date: 20250626
  Receipt Date: 20250723
  Transmission Date: 20251021
  Serious: Yes (Other)
  Sender: TAKEDA
  Company Number: CA-TAKEDA-2025TUS057704

PATIENT
  Sex: Male

DRUGS (1)
  1. VEDOLIZUMAB [Suspect]
     Active Substance: VEDOLIZUMAB
     Indication: Colitis ulcerative

REACTIONS (8)
  - Haematochezia [Unknown]
  - Weight decreased [Unknown]
  - Fall [Unknown]
  - Diarrhoea [Unknown]
  - Decreased appetite [Unknown]
  - Dizziness [Unknown]
  - Vomiting [Unknown]
  - Nausea [Unknown]
